FAERS Safety Report 5273003-5 (Version None)
Quarter: 2007Q1

REPORT INFORMATION
  Report Type: 
  Country: None (occurrence: None)
  Receive Date: 20070322
  Receipt Date: 20070322
  Transmission Date: 20070707
  Serious: Yes (Death)
  Sender: FDA-Public Use
  Company Number: JP-BRISTOL-MYERS SQUIBB COMPANY-13624606

PATIENT
  Age: 82 Year
  Sex: Male

DRUGS (5)
  1. TAXOL [Suspect]
     Indication: PANCREATIC CARCINOMA
     Route: 042
     Dates: start: 20041119, end: 20041119
  2. TRIMETHOPRIM + SULFAMETHOXAZOLE [Suspect]
     Indication: PANCREATIC CARCINOMA
     Route: 048
     Dates: start: 20041129, end: 20041129
  3. WARFARIN POTASSIUM [Suspect]
     Route: 048
  4. RANDA [Concomitant]
     Route: 042
     Dates: start: 20041130, end: 20041130
  5. FLUOROURACIL [Concomitant]

REACTIONS (1)
  - UPPER GASTROINTESTINAL HAEMORRHAGE [None]
